FAERS Safety Report 5680328-8 (Version None)
Quarter: 2008Q1

REPORT INFORMATION
  Report Type: 
  Country: None (occurrence: None)
  Receive Date: 20080326
  Receipt Date: 20080318
  Transmission Date: 20080703
  Serious: Yes (Hospitalization, Other)
  Sender: FDA-Public Use
  Company Number: GB-TEVA-168658ISR

PATIENT
  Age: 86 Year
  Sex: Female
  Weight: 50.7 kg

DRUGS (1)
  1. GABAPENTIN [Suspect]
     Indication: POST HERPETIC NEURALGIA
     Route: 030
     Dates: start: 20080116, end: 20080226

REACTIONS (1)
  - HEPATITIS [None]
